FAERS Safety Report 5216897-1 (Version None)
Quarter: 2007Q1

REPORT INFORMATION
  Report Type: 
  Country: None (occurrence: None)
  Receive Date: 20070119
  Receipt Date: 20070106
  Transmission Date: 20070707
  Serious: Yes (Hospitalization)
  Sender: FDA-Public Use
  Company Number: SPVI-2006-02316

PATIENT
  Age: 64 Year
  Sex: Female

DRUGS (4)
  1. PENTASA [Suspect]
     Indication: CROHN'S DISEASE
     Dosage: 2 G 2XS DAILY ORAL
     Route: 048
     Dates: start: 20060801, end: 20060914
  2. CALCIUM CARBONATE [Concomitant]
  3. PREDNISONE [Concomitant]
  4. CO-AMOXI /01000301/ (AMOXICILLIN, CLAVULANATE POTASSIUM) [Concomitant]

REACTIONS (16)
  - ALANINE AMINOTRANSFERASE INCREASED [None]
  - ANAEMIA [None]
  - ASPARTATE AMINOTRANSFERASE INCREASED [None]
  - ATRIAL FIBRILLATION [None]
  - BAND NEUTROPHIL COUNT INCREASED [None]
  - BLOOD ALKALINE PHOSPHATASE INCREASED [None]
  - GAMMA-GLUTAMYLTRANSFERASE INCREASED [None]
  - HYPERAESTHESIA [None]
  - HYPERHIDROSIS [None]
  - MUSCLE SPASMS [None]
  - MUSCULOSKELETAL PAIN [None]
  - NECK PAIN [None]
  - PERICARDIAL EFFUSION [None]
  - PYREXIA [None]
  - SYSTEMIC INFLAMMATORY RESPONSE SYNDROME [None]
  - TACHYCARDIA [None]
